FAERS Safety Report 7383154-7 (Version None)
Quarter: 2011Q1

REPORT INFORMATION
  Report Type: 
  Country: None (occurrence: None)
  Receive Date: 20110325
  Receipt Date: 20110325
  Transmission Date: 20110831
  Serious: Yes (Hospitalization)
  Sender: FDA-Public Use
  Company Number: None

PATIENT
  Age: 75 Year
  Sex: Female
  Weight: 108.3 kg

DRUGS (19)
  1. LISINOPRIL [Suspect]
     Indication: HYPERTENSION
     Dosage: 40 MG DAILY PO CHRONIC
     Route: 048
  2. AZUR (OLMESARTAN) [Suspect]
     Dosage: 10-40 DAILY PO CHRONIC
     Route: 048
  3. METFORMIN HCL [Concomitant]
  4. AMMONIUM [Concomitant]
  5. LANTUS [Concomitant]
  6. FUROSEMIDE [Concomitant]
  7. ENBREL [Concomitant]
  8. LORAZEPAM [Concomitant]
  9. POTASSIUM CHLORIDE [Suspect]
     Indication: HYPERTENSION
     Dosage: 10MEQ DAILY PO CHRONIC
     Route: 048
  10. AZOR [Concomitant]
  11. ASPIRIN [Concomitant]
  12. M.V.I. [Concomitant]
  13. LISINOPRIL [Concomitant]
  14. KLOR-CON [Concomitant]
  15. MIRALAX [Concomitant]
  16. HUMALOG [Concomitant]
  17. CARVEDILOL [Concomitant]
  18. SIMVASTATIN [Concomitant]
  19. OMEPRAZOLE [Concomitant]

REACTIONS (3)
  - FALL [None]
  - ASTHENIA [None]
  - HYPERKALAEMIA [None]
